FAERS Safety Report 6443820-4 (Version None)
Quarter: 2009Q4

REPORT INFORMATION
  Report Type: 
  Country: None (occurrence: None)
  Receive Date: 20091117
  Receipt Date: 20091104
  Transmission Date: 20100525
  Serious: Yes (Other)
  Sender: FDA-Public Use
  Company Number: ES-GENENTECH-294163

PATIENT
  Age: 66 Year
  Sex: Male

DRUGS (1)
  1. TENECTEPLASE [Suspect]
     Indication: THROMBOSIS
     Dosage: 10000 UNIT, UNK

REACTIONS (3)
  - CEREBRAL ARTERY EMBOLISM [None]
  - CEREBRAL ISCHAEMIA [None]
  - HEMIPARESIS [None]
